FAERS Safety Report 18308143 (Version 3)
Quarter: 2020Q4

REPORT INFORMATION
  Report Type: Spontaneous
  Country: LT (occurrence: LT)
  Receive Date: 20200924
  Receipt Date: 20201029
  Transmission Date: 20210113
  Serious: Yes (Hospitalization)
  Sender: FDA-Public Use
  Company Number: NVSC2020LT260291

PATIENT
  Age: 42 Year
  Sex: Male

DRUGS (1)
  1. NILOTINIB [Suspect]
     Active Substance: NILOTINIB
     Indication: CHRONIC MYELOID LEUKAEMIA
     Dosage: 400 MG, BID
     Route: 048

REACTIONS (5)
  - Angina pectoris [Recovered/Resolved]
  - Electrocardiogram ST segment elevation [Recovering/Resolving]
  - Atrial fibrillation [Recovered/Resolved]
  - Therapeutic response unexpected [Unknown]
  - Chest pain [Recovered/Resolved]
